FAERS Safety Report 24634570 (Version 1)
Quarter: 2024Q4

REPORT INFORMATION
  Report Type: Spontaneous
  Country: JP (occurrence: JP)
  Receive Date: 20241119
  Receipt Date: 20241119
  Transmission Date: 20250115
  Serious: Yes (Other)
  Sender: MERCK
  Company Number: JP-BAYER-2024A162866

PATIENT
  Age: 9 Decade
  Sex: Male

DRUGS (3)
  1. VERICIGUAT [Suspect]
     Active Substance: VERICIGUAT
     Indication: Heart failure with reduced ejection fraction
     Dosage: 2.5MG DAILY
  2. VERICIGUAT [Suspect]
     Active Substance: VERICIGUAT
     Dosage: 10MG DAILY
  3. ENTRESTO [Concomitant]
     Active Substance: SACUBITRIL\VALSARTAN
     Indication: Heart failure with reduced ejection fraction
     Dosage: UNK

REACTIONS (2)
  - Renal impairment [Recovering/Resolving]
  - Diarrhoea [Recovering/Resolving]
